FAERS Safety Report 22193981 (Version 1)
Quarter: 2023Q2

REPORT INFORMATION
  Report Type: Spontaneous
  Country: US (occurrence: US)
  Receive Date: 20230411
  Receipt Date: 20230411
  Transmission Date: 20230721
  Serious: No
  Sender: FDA-Public Use
  Company Number: US-GSKCCFUS-Case-01669077_AE-94209

PATIENT
  Age: 79 Year
  Sex: Male

DRUGS (1)
  1. BLENREP [Suspect]
     Active Substance: BELANTAMAB MAFODOTIN-BLMF
     Indication: Product used for unknown indication
     Dosage: UNK
     Dates: start: 20221031, end: 20221031

REACTIONS (1)
  - Ocular toxicity [Recovered/Resolved]

NARRATIVE: CASE EVENT DATE: 20221031
